FAERS Safety Report 9952747 (Version 1)
Quarter: 2014Q1

REPORT INFORMATION
  Report Type: Report from Study
  Country: US (occurrence: US)
  Receive Date: 20140304
  Receipt Date: 20140304
  Transmission Date: 20141002
  Serious: No
  Sender: FDA-Public Use
  Company Number: US-ABBVIE-13P-163-1072501-00

PATIENT
  Age: 59 Year
  Sex: Female

DRUGS (8)
  1. HUMIRA [Suspect]
     Indication: RHEUMATOID ARTHRITIS
     Route: 058
     Dates: start: 2011, end: 2012
  2. LYRICA [Concomitant]
     Indication: FIBROMYALGIA
  3. LYRICA [Concomitant]
     Indication: NEUROPATHY PERIPHERAL
  4. SPIRONOLACTONE [Concomitant]
     Indication: BLOOD PRESSURE
  5. BUMEX [Concomitant]
     Indication: BLOOD PRESSURE
  6. METFORMIN [Concomitant]
     Indication: DIABETES MELLITUS
  7. FOLIC ACID [Concomitant]
     Indication: PRODUCT USED FOR UNKNOWN INDICATION
  8. METHOTREXATE [Concomitant]
     Indication: PRODUCT USED FOR UNKNOWN INDICATION

REACTIONS (1)
  - Arthritis [Not Recovered/Not Resolved]
